FAERS Safety Report 9762273 (Version 1)
Quarter: 2013Q4

REPORT INFORMATION
  Report Type: Spontaneous
  Country: US (occurrence: US)
  Receive Date: 20131216
  Receipt Date: 20131216
  Transmission Date: 20140711
  Serious: No
  Sender: FDA-Public Use
  Company Number: US-BIOGENIDEC-2013BI108165

PATIENT
  Sex: Female

DRUGS (8)
  1. TECFIDERA [Suspect]
     Indication: MULTIPLE SCLEROSIS
     Route: 048
     Dates: start: 201309, end: 201309
  2. TECFIDERA [Suspect]
     Indication: MULTIPLE SCLEROSIS
     Route: 048
     Dates: start: 201309
  3. SOMA [Concomitant]
  4. ALPRAZOLAM [Concomitant]
  5. PROBIOTIC [Concomitant]
  6. VITAMIN D [Concomitant]
  7. XANAX [Concomitant]
  8. CELEXA [Concomitant]

REACTIONS (3)
  - Weight increased [Unknown]
  - Hot flush [Unknown]
  - Flushing [Unknown]
